FAERS Safety Report 9376135 (Version 2)
Quarter: 2015Q2

REPORT INFORMATION
  Report Type: Spontaneous
  Country: PL (occurrence: PL)
  Receive Date: 20130630
  Receipt Date: 20150601
  Transmission Date: 20150821
  Serious: Yes (Life-Threatening)
  Sender: FDA-Public Use
  Company Number: PL-TEVA-414645ISR

PATIENT
  Age: 63 Year
  Sex: Male
  Weight: 81 kg

DRUGS (2)
  1. CISPLATIN. [Suspect]
     Active Substance: CISPLATIN
     Indication: NEOPLASM MALIGNANT
     Dosage: 57.03 MILLIGRAM DAILY;
     Route: 042
     Dates: start: 20130612, end: 20130614
  2. ETOPOSID-EBEWE [Suspect]
     Active Substance: ETOPOSIDE
     Indication: NEOPLASM MALIGNANT
     Dosage: 190.1 MILLIGRAM DAILY;
     Route: 042
     Dates: start: 20130612, end: 20130614

REACTIONS (1)
  - Pancytopenia [Recovering/Resolving]

NARRATIVE: CASE EVENT DATE: 20130621
